FAERS Safety Report 5910940-X (Version None)
Quarter: 2008Q4

REPORT INFORMATION
  Report Type: 
  Country: None (occurrence: None)
  Receive Date: 20081007
  Receipt Date: 20080715
  Transmission Date: 20090506
  Serious: No
  Sender: FDA-Public Use
  Company Number: US-ASTRAZENECA-2008UW14175

PATIENT
  Age: 67 Year
  Sex: Female
  Weight: 63.5 kg

DRUGS (9)
  1. ARIMIDEX [Suspect]
     Indication: BREAST CANCER FEMALE
     Route: 048
     Dates: start: 20040101
  2. NEXIUM [Concomitant]
     Route: 048
  3. WELLBUTRIN [Concomitant]
  4. SYNTHROID [Concomitant]
  5. AMITIZA [Concomitant]
  6. LIBRAX [Concomitant]
  7. CELEBREX [Concomitant]
  8. CYMBALTA [Concomitant]
  9. AVAPRO [Concomitant]

REACTIONS (3)
  - ARTHRITIS [None]
  - FIBROMYALGIA [None]
  - WEIGHT INCREASED [None]
